FAERS Safety Report 7134853-3 (Version None)
Quarter: 2010Q4

REPORT INFORMATION
  Report Type: 
  Country: None (occurrence: None)
  Receive Date: 20101203
  Receipt Date: 20101124
  Transmission Date: 20110411
  Serious: Yes (Other)
  Sender: FDA-Public Use
  Company Number: US-JNJFOC-20100707730

PATIENT
  Sex: Female
  Weight: 57.61 kg

DRUGS (9)
  1. REMICADE [Suspect]
     Indication: RHEUMATOID ARTHRITIS
     Route: 042
  2. PREVACID [Concomitant]
     Indication: GASTROOESOPHAGEAL REFLUX DISEASE
     Route: 048
  3. EVISTA [Concomitant]
     Indication: BONE DENSITY ABNORMAL
     Route: 048
  4. PRAVACHOL [Concomitant]
     Indication: BLOOD CHOLESTEROL
     Route: 048
  5. LOPID [Concomitant]
     Indication: BLOOD CHOLESTEROL
     Route: 048
  6. EFFEXOR [Concomitant]
     Indication: DEPRESSION
     Route: 048
  7. RELPAX [Concomitant]
     Indication: MIGRAINE
     Route: 048
  8. VICODIN [Concomitant]
     Indication: PAIN
     Route: 048
  9. FLEXERIL [Concomitant]
     Indication: MUSCLE SPASMS
     Route: 048

REACTIONS (4)
  - CELLULITIS [None]
  - DENTAL CARIES [None]
  - OESOPHAGEAL CANDIDIASIS [None]
  - SJOGREN'S SYNDROME [None]
